FAERS Safety Report 8757226 (Version 2)
Quarter: 2012Q4

REPORT INFORMATION
  Report Type: Report from Study
  Country: JP (occurrence: JP)
  Receive Date: 20120828
  Receipt Date: 20121210
  Transmission Date: 20130627
  Serious: Yes (Other)
  Sender: FDA-Public Use
  Company Number: JP-VERTEX PHARMACEUTICAL INC.-AE-2012-010547

PATIENT
  Age: 70 Year
  Sex: Female

DRUGS (10)
  1. VX-950 (TELAPREVIR) [Suspect]
     Indication: HEPATITIS C
     Dosage: 1500 mg, qd
     Route: 048
     Dates: start: 20120515, end: 20120805
  2. RIBAVIRIN [Suspect]
     Indication: HEPATITIS C
     Dosage: 400 mg, qd
     Route: 048
     Dates: start: 20120515, end: 20120603
  3. RIBAVIRIN [Suspect]
     Dosage: 200 mg, qd
     Route: 048
     Dates: start: 20120604, end: 20120918
  4. RIBAVIRIN [Suspect]
     Dosage: 400 mg, qd
     Route: 048
     Dates: start: 20120919, end: 20121105
  5. PEGINTERFERON ALFA-2B [Suspect]
     Indication: HEPATITIS C
     Dosage: 1.2 ?g/kg, qw
     Route: 058
     Dates: start: 20120515, end: 20121105
  6. FASTIC [Concomitant]
     Dosage: 270 mg, qd
     Route: 048
  7. FEROTYM [Concomitant]
     Dosage: 100 mg, qd
     Route: 048
  8. CLARITIN REDITABS [Concomitant]
     Dosage: 10 mg, qd
     Route: 048
  9. LIVALO [Concomitant]
     Dosage: 2 mg, qd
     Route: 048
  10. ETHYL ICOSAPENTATE [Concomitant]
     Dosage: 1800 mg, qd
     Route: 048

REACTIONS (6)
  - Anaemia [Not Recovered/Not Resolved]
  - Anaemia [Not Recovered/Not Resolved]
  - Anaemia [Not Recovered/Not Resolved]
  - Rash [Recovered/Resolved]
  - Platelet count decreased [Not Recovered/Not Resolved]
  - Platelet count decreased [Not Recovered/Not Resolved]
